FAERS Safety Report 6666617-9 (Version None)
Quarter: 2010Q2

REPORT INFORMATION
  Report Type: 
  Country: None (occurrence: None)
  Receive Date: 20100405
  Receipt Date: 20100326
  Transmission Date: 20101027
  Serious: Yes (Other)
  Sender: FDA-Public Use
  Company Number: US-BIOGENIDEC-2010BI005477

PATIENT
  Age: 45 Year
  Sex: Male
  Weight: 82 kg

DRUGS (13)
  1. TYSABRI [Suspect]
     Indication: MULTIPLE SCLEROSIS
     Route: 042
     Dates: start: 20070426, end: 20100111
  2. BACLOFEN [Concomitant]
  3. BACLOFEN [Concomitant]
  4. BACLOFEN [Concomitant]
  5. LEVOXYL [Concomitant]
  6. LYRICA [Concomitant]
  7. RITALIN [Concomitant]
  8. RITALIN [Concomitant]
  9. VIAGRA [Concomitant]
  10. VICODIN [Concomitant]
     Indication: PAIN
  11. SYNTHROID [Concomitant]
  12. MULTIPLE VITAMIN [Concomitant]
     Indication: SUPPLEMENTATION THERAPY
  13. IBUPROFEN [Concomitant]

REACTIONS (4)
  - DEPRESSION [None]
  - IMMUNE RECONSTITUTION SYNDROME [None]
  - PROGRESSIVE MULTIFOCAL LEUKOENCEPHALOPATHY [None]
  - URINARY TRACT INFECTION [None]
